FAERS Safety Report 25944583 (Version 2)
Quarter: 2025Q4

REPORT INFORMATION
  Report Type: Spontaneous
  Country: US (occurrence: US)
  Receive Date: 20251021
  Receipt Date: 20251111
  Transmission Date: 20260118
  Serious: No
  Sender: PFIZER
  Company Number: US-PFIZER INC-202400108667

PATIENT
  Age: 65 Year
  Sex: Female

DRUGS (5)
  1. XELJANZ [Suspect]
     Active Substance: TOFACITINIB CITRATE
     Indication: Psoriatic arthropathy
     Dosage: 5 MG PO QD
     Route: 048
  2. XELJANZ [Suspect]
     Active Substance: TOFACITINIB CITRATE
     Dosage: 5 MG PO BID
     Route: 048
  3. ALLEGRA [Concomitant]
     Active Substance: FEXOFENADINE HYDROCHLORIDE
     Indication: Hypersensitivity
     Dosage: UNK
  4. ESTROGENS [Concomitant]
     Active Substance: ESTROGENS
     Indication: Menopause
     Dosage: UNK
  5. ESTROGENS [Concomitant]
     Active Substance: ESTROGENS
     Indication: Hot flush

REACTIONS (1)
  - Product prescribing error [Unknown]
